FAERS Safety Report 12827372 (Version 1)
Quarter: 2016Q4

REPORT INFORMATION
  Report Type: Spontaneous
  Country: KR (occurrence: KR)
  Receive Date: 20161007
  Receipt Date: 20161007
  Transmission Date: 20170207
  Serious: Yes (Other)
  Sender: FDA-Public Use
  Company Number: KR-PRINSTON PHARMACEUTICAL INC.-2016PRN00263

PATIENT
  Age: 52 Year
  Sex: Male

DRUGS (6)
  1. MODAFINIL. [Suspect]
     Active Substance: MODAFINIL
     Route: 065
  2. ROPINIROLE. [Suspect]
     Active Substance: ROPINIROLE
     Indication: BRAIN STEM HAEMORRHAGE
     Dosage: 0.25 MG, 1X/DAY
     Route: 065
  3. METHYLPHENIDATE. [Suspect]
     Active Substance: METHYLPHENIDATE
     Route: 065
  4. ROPINIROLE. [Suspect]
     Active Substance: ROPINIROLE
     Dosage: 0.375 MG, 1X/DAY
     Route: 065
  5. AMANTADINE [Suspect]
     Active Substance: AMANTADINE
     Route: 065
  6. CARBIDOPA/LEVODOPA [Suspect]
     Active Substance: CARBIDOPA\LEVODOPA
     Route: 065

REACTIONS (1)
  - Serotonin syndrome [Recovered/Resolved]
